FAERS Safety Report 8781231 (Version 2)
Quarter: 2012Q4

REPORT INFORMATION
  Report Type: Report from Study
  Country: JP (occurrence: JP)
  Receive Date: 20120913
  Receipt Date: 20120913
  Transmission Date: 20130627
  Serious: Yes (Other)
  Sender: FDA-Public Use
  Company Number: JP-ROCHE-1097888

PATIENT
  Age: 54 Year
  Sex: Female

DRUGS (9)
  1. ROACTEMRA [Suspect]
     Indication: RHEUMATOID ARTHRITIS
     Route: 041
     Dates: start: 20090520, end: 20100903
  2. ROACTEMRA [Suspect]
     Indication: RHEUMATOID ARTHRITIS
     Route: 041
     Dates: start: 20101015, end: 20101015
  3. ISCOTIN [Suspect]
     Indication: ANTIBIOTIC PROPHYLAXIS
     Route: 048
     Dates: start: 20090520, end: 20091016
  4. AZULFIDINE-EN [Suspect]
     Indication: RHEUMATOID ARTHRITIS
     Route: 048
     Dates: start: 20071005
  5. RHEUMATREX [Suspect]
     Indication: RHEUMATOID ARTHRITIS
     Dosage: Amount 2
     Route: 048
     Dates: start: 20071217, end: 20080916
  6. RHEUMATREX [Suspect]
     Indication: RHEUMATOID ARTHRITIS
     Dosage: Amount 2
     Route: 048
     Dates: start: 20080917, end: 20081223
  7. RHEUMATREX [Suspect]
     Indication: RHEUMATOID ARTHRITIS
     Dosage: Amount 2
     Route: 048
     Dates: start: 20081224, end: 20101102
  8. ETODOLAC [Concomitant]
     Indication: RHEUMATOID ARTHRITIS
     Route: 048
     Dates: start: 2007, end: 20090716
  9. FOLIAMIN [Concomitant]
     Indication: PROPHYLAXIS
     Route: 048

REACTIONS (2)
  - Pneumonia [Recovered/Resolved]
  - Pleurisy viral [Unknown]
